FAERS Safety Report 15505611 (Version 1)
Quarter: 2018Q4

REPORT INFORMATION
  Report Type: Spontaneous
  Country: US (occurrence: US)
  Receive Date: 20181010
  Receipt Date: 20181010
  Transmission Date: 20190205
  Serious: Yes (Other)
  Sender: FDA-Public Use
  Company Number: None

PATIENT
  Age: 62 Year
  Sex: Female
  Weight: 70.31 kg

DRUGS (13)
  1. LONSTIL [Concomitant]
  2. MELOXICAM. [Concomitant]
     Active Substance: MELOXICAM
  3. VENTOLIN [Concomitant]
     Active Substance: ALBUTEROL SULFATE
  4. LEXOTHYROXINE [Concomitant]
  5. POTASSIUM [Concomitant]
     Active Substance: POTASSIUM
  6. ROBAXIA [Concomitant]
  7. NEULASTA [Suspect]
     Active Substance: PEGFILGRASTIM
     Indication: DRUG THERAPY
     Dosage: ?          OTHER STRENGTH:1 ON BODY INJECTOR;?
     Dates: start: 20180904, end: 20180905
  8. NITROGLYCERIN. [Concomitant]
     Active Substance: NITROGLYCERIN
  9. AMBIEN [Concomitant]
     Active Substance: ZOLPIDEM TARTRATE
  10. HYDROCODONE [Concomitant]
     Active Substance: HYDROCODONE
  11. BABY ASPIRIN [Concomitant]
     Active Substance: ASPIRIN
  12. GABAPENTIN. [Concomitant]
     Active Substance: GABAPENTIN
  13. LEXAPRO [Concomitant]
     Active Substance: ESCITALOPRAM OXALATE

REACTIONS (12)
  - Internal haemorrhage [None]
  - Body temperature increased [None]
  - Diarrhoea haemorrhagic [None]
  - Hot flush [None]
  - Faeces discoloured [None]
  - Chest pain [None]
  - Rash [None]
  - Haematemesis [None]
  - Dizziness [None]
  - Anaemia [None]
  - Hyperhidrosis [None]
  - Nausea [None]

NARRATIVE: CASE EVENT DATE: 20180905
